FAERS Safety Report 9790175 (Version 1)
Quarter: 2013Q4

REPORT INFORMATION
  Report Type: Report from Study
  Country: GB (occurrence: GB)
  Receive Date: 20131231
  Receipt Date: 20131231
  Transmission Date: 20140711
  Serious: No
  Sender: FDA-Public Use
  Company Number: PHHY2013GB144275

PATIENT
  Sex: 0

DRUGS (1)
  1. ACZ885 [Suspect]

REACTIONS (2)
  - Laryngitis [Recovered/Resolved]
  - Mouth ulceration [Recovered/Resolved]
